FAERS Safety Report 4659796-6 (Version None)
Quarter: 2005Q2

REPORT INFORMATION
  Report Type: 
  Country: None (occurrence: None)
  Receive Date: 20050510
  Receipt Date: 20050422
  Transmission Date: 20051028
  Serious: Yes (Death, Life-Threatening)
  Sender: FDA-Public Use
  Company Number: US_0505116924

PATIENT
  Age: 41 Year
  Sex: Female
  Weight: 125 kg

DRUGS (13)
  1. ZYPREXA [Suspect]
     Indication: DELUSION
     Dosage: 15 MG/1 AT BEDTIME
     Route: 048
     Dates: start: 20000509
  2. PROZAC [Concomitant]
  3. BUSPAR [Concomitant]
  4. DIVALPROEX SODIUM [Concomitant]
  5. TRAZODONE [Concomitant]
  6. CELEXA [Concomitant]
  7. ATORVASTATIN CALCIUM [Concomitant]
  8. NORVASC [Concomitant]
  9. ESTROPIPATE [Concomitant]
  10. HYDROCHLOROTHIAZIDE [Concomitant]
  11. LISINOPRIL [Concomitant]
  12. XANAX (ALPRAZOLAM DUM) [Concomitant]
  13. LOPID [Concomitant]

REACTIONS (14)
  - BLOOD CHOLESTEROL INCREASED [None]
  - BLOOD GLUCOSE FLUCTUATION [None]
  - CARDIAC ARREST [None]
  - DIABETES MELLITUS NON-INSULIN-DEPENDENT [None]
  - GLYCOSYLATED HAEMOGLOBIN INCREASED [None]
  - HYPERGLYCAEMIA [None]
  - INGROWING NAIL [None]
  - LOW DENSITY LIPOPROTEIN DECREASED [None]
  - PUPIL FIXED [None]
  - TREATMENT NONCOMPLIANCE [None]
  - URINARY TRACT INFECTION [None]
  - VENTRICULAR FIBRILLATION [None]
  - WEIGHT FLUCTUATION [None]
  - WEIGHT INCREASED [None]
